FAERS Safety Report 8345522-6 (Version None)
Quarter: 2012Q2

REPORT INFORMATION
  Report Type: 
  Country: None (occurrence: None)
  Receive Date: 20120508
  Receipt Date: 20120502
  Transmission Date: 20120825
  Serious: Yes (Hospitalization, Other)
  Sender: FDA-Public Use
  Company Number: CA-ABBOTT-12P-028-0891617-00

PATIENT
  Sex: Female
  Weight: 62.652 kg

DRUGS (4)
  1. VITAMIN B1 TAB [Concomitant]
     Indication: PRODUCT USED FOR UNKNOWN INDICATION
  2. HUMIRA [Suspect]
     Indication: PSORIASIS
     Route: 058
     Dates: start: 20110907, end: 20111101
  3. HUMIRA [Suspect]
     Route: 058
     Dates: start: 20120323
  4. UNKNOWN MEDICATION FOR HIGH BLOOD PRESSURE [Concomitant]
     Indication: HYPERTENSION

REACTIONS (7)
  - UPPER LIMB FRACTURE [None]
  - FALL [None]
  - DYSPEPSIA [None]
  - CONCUSSION [None]
  - NAUSEA [None]
  - LACERATION [None]
  - HEADACHE [None]
